FAERS Safety Report 6517518-8 (Version None)
Quarter: 2009Q4

REPORT INFORMATION
  Report Type: 
  Country: None (occurrence: None)
  Receive Date: 20091224
  Receipt Date: 20091217
  Transmission Date: 20100525
  Serious: Yes (Hospitalization)
  Sender: FDA-Public Use
  Company Number: GXKR2009FR13570

PATIENT
  Age: 46 Year
  Sex: Female

DRUGS (4)
  1. CHLORPROMAZINE [Suspect]
  2. LOXAPINE (NGX) [Suspect]
  3. TRIHEXYPHENIDYL (NGX) [Suspect]
  4. TROPATEPINE [Suspect]

REACTIONS (12)
  - ABDOMINAL COMPARTMENT SYNDROME [None]
  - ABDOMINAL DISTENSION [None]
  - ABDOMINAL PAIN [None]
  - COLONIC PSEUDO-OBSTRUCTION [None]
  - GASTROINTESTINAL HYPOMOTILITY [None]
  - HYPOVENTILATION [None]
  - INTESTINAL RESECTION [None]
  - RENAL FAILURE ACUTE [None]
  - RESPIRATORY RATE INCREASED [None]
  - SHOCK [None]
  - SURGERY [None]
  - VOMITING [None]
